FAERS Safety Report 9548187 (Version 2)
Quarter: 2014Q2

REPORT INFORMATION
  Report Type: Spontaneous
  Country: US (occurrence: US)
  Receive Date: 20130924
  Receipt Date: 20140528
  Transmission Date: 20141212
  Serious: No
  Sender: FDA-Public Use
  Company Number: US-009507513-1309USA009679

PATIENT
  Sex: Female
  Weight: 58.5 kg

DRUGS (3)
  1. MIRALAX [Suspect]
     Indication: COLONOSCOPY
     Dosage: 17 G, PRN
     Route: 048
     Dates: start: 2013
  2. MIRALAX [Suspect]
     Indication: CONSTIPATION
     Dosage: 17 G, PRN
     Route: 048
     Dates: start: 2011, end: 2012
  3. MIRALAX [Suspect]
     Indication: BOWEL MOVEMENT IRREGULARITY

REACTIONS (6)
  - Abdominal distension [Unknown]
  - Abdominal pain upper [Unknown]
  - Nausea [Unknown]
  - Drug ineffective [Unknown]
  - Expired product administered [Unknown]
  - Off label use [Unknown]
